FAERS Safety Report 7075099-7 (Version None)
Quarter: 2010Q4

REPORT INFORMATION
  Report Type: 
  Country: None (occurrence: None)
  Receive Date: 20101029
  Receipt Date: 20100319
  Transmission Date: 20110411
  Serious: No
  Sender: FDA-Public Use
  Company Number: US-WYE-H14283310

PATIENT
  Age: 63 Year
  Sex: Male
  Weight: 90.8 kg

DRUGS (2)
  1. ADVIL PM [Suspect]
     Indication: INSOMNIA
     Dosage: 2 CAPLETS EVERY OTHER NIGHT
     Route: 048
     Dates: start: 20100301, end: 20100318
  2. PERCOCET [Concomitant]

REACTIONS (3)
  - DRUG INEFFECTIVE [None]
  - FEELING JITTERY [None]
  - INCREASED APPETITE [None]
